FAERS Safety Report 6442025-0 (Version None)
Quarter: 2009Q4

REPORT INFORMATION
  Report Type: 
  Country: None (occurrence: None)
  Receive Date: 20091116
  Receipt Date: 20091106
  Transmission Date: 20100525
  Serious: Yes (Death, Other)
  Sender: FDA-Public Use
  Company Number: DE-ABBOTT-08P-062-0467924-00

PATIENT
  Sex: Female

DRUGS (20)
  1. HUMIRA [Suspect]
     Indication: RHEUMATOID ARTHRITIS
     Dates: start: 20041201, end: 20070901
  2. SALAZOSULFAPYRIDINE [Concomitant]
     Indication: DRUG USE FOR UNKNOWN INDICATION
  3. LEFLUNOMIDE [Concomitant]
     Indication: DRUG USE FOR UNKNOWN INDICATION
     Dates: start: 20070201, end: 20070901
  4. SASP [Concomitant]
     Indication: DRUG USE FOR UNKNOWN INDICATION
     Dates: start: 20031101, end: 20070301
  5. CYCLOPHOSPHAMIDE [Concomitant]
     Indication: DRUG USE FOR UNKNOWN INDICATION
     Dosage: LAST 8TH BOLUS WITH 800MG
     Route: 042
     Dates: start: 20070901, end: 20080301
  6. VERAHEXAL [Concomitant]
     Indication: DRUG USE FOR UNKNOWN INDICATION
  7. TORSEMIDE [Concomitant]
     Indication: DRUG USE FOR UNKNOWN INDICATION
  8. XIPAMID [Concomitant]
     Indication: DRUG USE FOR UNKNOWN INDICATION
  9. DECORTIN [Concomitant]
     Indication: DRUG USE FOR UNKNOWN INDICATION
  10. PANTOZOL [Concomitant]
     Indication: DRUG USE FOR UNKNOWN INDICATION
  11. IBUPROFEN [Concomitant]
     Indication: DRUG USE FOR UNKNOWN INDICATION
  12. URSO FALK [Concomitant]
     Indication: DRUG USE FOR UNKNOWN INDICATION
  13. CALCIUM [Concomitant]
     Indication: DRUG USE FOR UNKNOWN INDICATION
     Dosage: FIZZY TABLETS
  14. NULYTELY [Concomitant]
     Indication: DRUG USE FOR UNKNOWN INDICATION
     Dosage: BAG
  15. NEXIUM [Concomitant]
     Indication: DRUG USE FOR UNKNOWN INDICATION
  16. OMEPRAZOLE [Concomitant]
     Indication: DRUG USE FOR UNKNOWN INDICATION
  17. MESALAZIN [Concomitant]
     Indication: DRUG USE FOR UNKNOWN INDICATION
     Dosage: KLYSMA
  18. TORSEMIDE [Concomitant]
  19. ALDACTONE [Concomitant]
     Indication: DRUG USE FOR UNKNOWN INDICATION
  20. CITALOPRAM HYDROBROMIDE [Concomitant]
     Indication: DRUG USE FOR UNKNOWN INDICATION

REACTIONS (11)
  - ALVEOLITIS [None]
  - ANASTOMOTIC HAEMORRHAGE [None]
  - BACK PAIN [None]
  - CARDIAC FAILURE [None]
  - CIRCULATORY COLLAPSE [None]
  - GASTRITIS [None]
  - HAEMATOCHEZIA [None]
  - HYPOPHAGIA [None]
  - LARGE INTESTINE PERFORATION [None]
  - OEDEMATOUS PANCREATITIS [None]
  - PULMONARY FIBROSIS [None]
